FAERS Safety Report 25035597 (Version 1)
Quarter: 2025Q1

REPORT INFORMATION
  Report Type: Spontaneous
  Country: ES (occurrence: ES)
  Receive Date: 20250304
  Receipt Date: 20250304
  Transmission Date: 20250409
  Serious: Yes (Death, Other)
  Sender: AMGEN
  Company Number: ES-AMGEN-ESPSP2025039864

PATIENT

DRUGS (3)
  1. CARFILZOMIB [Suspect]
     Active Substance: CARFILZOMIB
     Indication: Plasma cell myeloma refractory
     Route: 065
  2. LENALIDOMIDE [Suspect]
     Active Substance: LENALIDOMIDE
     Indication: Plasma cell myeloma refractory
     Route: 065
  3. DEXAMETHASONE [Suspect]
     Active Substance: DEXAMETHASONE
     Indication: Plasma cell myeloma refractory
     Route: 065

REACTIONS (24)
  - Death [Fatal]
  - Lung neoplasm [Fatal]
  - Leukopenia [Fatal]
  - Thrombocytopenia [Fatal]
  - Infection [Fatal]
  - Plasma cell myeloma refractory [Fatal]
  - Second primary malignancy [Unknown]
  - Arrhythmia [Unknown]
  - Thrombosis [Unknown]
  - Skin toxicity [Unknown]
  - Nephritis [Unknown]
  - Hepatotoxicity [Unknown]
  - Cardiotoxicity [Unknown]
  - Acute kidney injury [Unknown]
  - Anaemia [Unknown]
  - Thrombotic microangiopathy [Unknown]
  - Neuropathy peripheral [Unknown]
  - Diarrhoea [Unknown]
  - Dyspnoea [Unknown]
  - Pyrexia [Unknown]
  - Oedema peripheral [Unknown]
  - Asthenia [Unknown]
  - Nausea [Unknown]
  - Hypertension [Unknown]
